FAERS Safety Report 16156543 (Version 2)
Quarter: 2019Q2

REPORT INFORMATION
  Report Type: Report from Study
  Country: None (occurrence: BR)
  Receive Date: 20190404
  Receipt Date: 20190620
  Transmission Date: 20190711
  Serious: Yes (Other)
  Sender: FDA-Public Use
  Company Number: BR-ABBVIE-19K-020-2624454-00

PATIENT
  Age: 78 Year
  Sex: Female

DRUGS (2)
  1. HUMIRA [Suspect]
     Active Substance: ADALIMUMAB
     Indication: RHEUMATOID ARTHRITIS
     Dosage: DISCONTINUED BETWEEN 3 AND 4 MONTHS
     Route: 058
     Dates: start: 20130617
  2. HUMIRA [Suspect]
     Active Substance: ADALIMUMAB
     Route: 058
     Dates: end: 201905

REACTIONS (8)
  - Interstitial lung disease [Unknown]
  - Emphysema [Unknown]
  - Bronchial disorder [Unknown]
  - Asthma [Recovered/Resolved]
  - Lung disorder [Unknown]
  - Pneumonia [Recovered/Resolved]
  - Anxiety [Unknown]
  - Pneumonia [Unknown]

NARRATIVE: CASE EVENT DATE: 201901
